FAERS Safety Report 25541157 (Version 1)
Quarter: 2025Q3

REPORT INFORMATION
  Report Type: Report from Study
  Country: US (occurrence: US)
  Receive Date: 20250710
  Receipt Date: 20250710
  Transmission Date: 20251021
  Serious: No
  Sender: MALLINCKRODT
  Company Number: US-MALLINCKRODT-MNK202503688

PATIENT
  Age: 43 Year
  Sex: Female

DRUGS (1)
  1. CORTICOTROPIN [Suspect]
     Active Substance: CORTICOTROPIN
     Indication: Ankylosing spondylitis
     Dates: start: 20250610

REACTIONS (3)
  - Abdominal pain upper [Unknown]
  - Memory impairment [Unknown]
  - Fatigue [Unknown]

NARRATIVE: CASE EVENT DATE: 20250601
